FAERS Safety Report 5118317-4 (Version None)
Quarter: 2006Q4

REPORT INFORMATION
  Report Type: 
  Country: None (occurrence: None)
  Receive Date: 20061002
  Receipt Date: 20060920
  Transmission Date: 20070319
  Serious: Yes (Hospitalization)
  Sender: FDA-Public Use
  Company Number: PHNU2006DE03184

PATIENT
  Sex: Female

DRUGS (3)
  1. TEGRETOL [Suspect]
     Indication: EPILEPSY
     Dosage: 400-0-400 MG/DAY
     Route: 048
     Dates: start: 19850101
  2. TEGRETOL [Suspect]
     Dosage: 400-0-800 MG/DAY
     Route: 048
  3. PRIMIDONE [Concomitant]

REACTIONS (3)
  - CONVULSION [None]
  - FATIGUE [None]
  - MYOCARDIAL INFARCTION [None]
